FAERS Safety Report 23456306 (Version 1)
Quarter: 2024Q1

REPORT INFORMATION
  Report Type: Spontaneous
  Country: US (occurrence: US)
  Receive Date: 20240130
  Receipt Date: 20240130
  Transmission Date: 20240410
  Serious: No
  Sender: FDA-Public Use
  Company Number: US-SA-SAC20240123001423

PATIENT
  Sex: Male

DRUGS (1)
  1. DUPIXENT [Suspect]
     Active Substance: DUPILUMAB
     Indication: Eczema
     Dosage: 300 MG, QOW
     Route: 058
     Dates: start: 20230922

REACTIONS (6)
  - Dry skin [Unknown]
  - Skin fissures [Unknown]
  - Rash macular [Unknown]
  - Skin discolouration [Unknown]
  - Pruritus [Unknown]
  - Therapeutic response shortened [Unknown]
